FAERS Safety Report 20529592 (Version 1)
Quarter: 2022Q1

REPORT INFORMATION
  Report Type: Spontaneous
  Country: JP (occurrence: JP)
  Receive Date: 20220301
  Receipt Date: 20220301
  Transmission Date: 20220423
  Serious: Yes (Hospitalization)
  Sender: FDA-Public Use
  Company Number: JP-ZAMBON-202200496COR

PATIENT
  Age: 9 Decade
  Sex: Female

DRUGS (4)
  1. SAFINAMIDE [Suspect]
     Active Substance: SAFINAMIDE
     Indication: Parkinson^s disease
     Route: 048
  2. NEUPRO [Concomitant]
     Active Substance: ROTIGOTINE
     Route: 062
  3. CARBIDOPA\LEVODOPA [Concomitant]
     Active Substance: CARBIDOPA\LEVODOPA
  4. DROXIDOPA [Concomitant]
     Active Substance: DROXIDOPA

REACTIONS (3)
  - Rhabdomyolysis [Unknown]
  - Neuroleptic malignant syndrome [Unknown]
  - Fall [Unknown]
